FAERS Safety Report 7813913-5 (Version None)
Quarter: 2011Q4

REPORT INFORMATION
  Report Type: 
  Country: None (occurrence: None)
  Receive Date: 20111014
  Receipt Date: 20111012
  Transmission Date: 20120403
  Serious: Yes (Other)
  Sender: FDA-Public Use
  Company Number: US-PFIZER INC-2011217175

PATIENT
  Sex: Female
  Weight: 81.633 kg

DRUGS (5)
  1. CHANTIX [Suspect]
     Dosage: UNK
     Route: 048
     Dates: start: 20110901, end: 20110926
  2. DOXEPIN [Concomitant]
     Indication: DEPRESSION
     Dosage: 200 MG, 1X/DAY
  3. NICOTINE [Suspect]
     Indication: SMOKING CESSATION THERAPY
     Dosage: 21 MG, UNK
     Route: 062
     Dates: start: 20111004, end: 20111011
  4. BUSPAR [Concomitant]
     Indication: ANXIETY
     Dosage: 15 MG, 3X/DAY
  5. CHANTIX [Suspect]
     Indication: SMOKING CESSATION THERAPY
     Dosage: 0.5 MG, DAILY
     Route: 048
     Dates: start: 20110911, end: 20110901

REACTIONS (3)
  - ANXIETY [None]
  - DEPRESSION [None]
  - POST-TRAUMATIC STRESS DISORDER [None]
